FAERS Safety Report 9958107 (Version 1)
Quarter: 2014Q1

REPORT INFORMATION
  Report Type: Report from Study
  Country: US (occurrence: US)
  Receive Date: 20140304
  Receipt Date: 20140304
  Transmission Date: 20141002
  Serious: No
  Sender: FDA-Public Use
  Company Number: US-ABBVIE-13P-163-1092143-00

PATIENT
  Age: 27 Year
  Sex: Female

DRUGS (3)
  1. HUMIRA [Suspect]
     Indication: CROHN^S DISEASE
     Dates: start: 20130405
  2. LIALDA [Concomitant]
     Indication: CROHN^S DISEASE
  3. BIRTH CONTROL PILL [Concomitant]
     Indication: CONTRACEPTION

REACTIONS (4)
  - Acne [Not Recovered/Not Resolved]
  - Acne [Not Recovered/Not Resolved]
  - Discomfort [Not Recovered/Not Resolved]
  - Increased tendency to bruise [Not Recovered/Not Resolved]
